FAERS Safety Report 8424291-5 (Version None)
Quarter: 2012Q2

REPORT INFORMATION
  Report Type: 
  Country: None (occurrence: None)
  Receive Date: 20120608
  Receipt Date: 20111025
  Transmission Date: 20120825
  Serious: Yes (Other)
  Sender: FDA-Public Use
  Company Number: US-ASTRAZENECA-2011SE64793

PATIENT
  Sex: Female

DRUGS (5)
  1. SYMBICORT [Suspect]
     Route: 055
  2. TOPROL-XL [Suspect]
     Route: 048
  3. CRESTOR [Suspect]
     Route: 048
  4. OMEPRAZOLE [Suspect]
     Route: 048
  5. PULMICORT FLEXHALER [Suspect]
     Route: 055

REACTIONS (3)
  - RENAL FAILURE [None]
  - DIABETES MELLITUS [None]
  - DIALYSIS [None]
